FAERS Safety Report 13244560 (Version 1)
Quarter: 2017Q1

REPORT INFORMATION
  Report Type: Spontaneous
  Country: US (occurrence: US)
  Receive Date: 20170217
  Receipt Date: 20170217
  Transmission Date: 20170428
  Serious: No
  Sender: FDA-Public Use
  Company Number: US-NOVOPROD-514830

PATIENT
  Age: 50 Year
  Sex: Female

DRUGS (1)
  1. VICTOZA [Suspect]
     Active Substance: LIRAGLUTIDE
     Indication: POLYCYSTIC OVARIES
     Dosage: 1.8 MG, QD
     Route: 058

REACTIONS (5)
  - Off label use [Unknown]
  - Injection site pain [Recovered/Resolved]
  - Weight loss poor [Recovered/Resolved]
  - Incorrect product storage [Recovered/Resolved]
  - Increased appetite [Recovered/Resolved]
